FAERS Safety Report 24596923 (Version 1)
Quarter: 2024Q4

REPORT INFORMATION
  Report Type: Spontaneous
  Country: US (occurrence: US)
  Receive Date: 20241110
  Receipt Date: 20241110
  Transmission Date: 20250115
  Serious: No
  Sender: SANOFI AVENTIS
  Company Number: US-SANOFI-02262987

PATIENT
  Age: 80 Year
  Sex: Female

DRUGS (4)
  1. DUPIXENT [Suspect]
     Active Substance: DUPILUMAB
     Indication: Dermatitis atopic
     Dosage: 600 MG, 1X
     Route: 065
     Dates: start: 20240929, end: 20240929
  2. DUPIXENT [Suspect]
     Active Substance: DUPILUMAB
     Dosage: 300 MG, QOW
     Route: 065
     Dates: start: 202410
  3. HUMIRA [Concomitant]
     Active Substance: ADALIMUMAB
     Dosage: UNK
  4. ADBRY [Concomitant]
     Active Substance: TRALOKINUMAB-LDRM
     Dosage: UNK

REACTIONS (1)
  - Illness [Unknown]

NARRATIVE: CASE EVENT DATE: 20240101
